FAERS Safety Report 12604096 (Version 1)
Quarter: 2016Q3

REPORT INFORMATION
  Report Type: Spontaneous
  Country: CA (occurrence: CA)
  Receive Date: 20160728
  Receipt Date: 20160728
  Transmission Date: 20161109
  Serious: Yes (Other)
  Sender: FDA-Public Use
  Company Number: CA-TEVA-680254USA

PATIENT
  Age: 39 Year
  Sex: Female

DRUGS (7)
  1. RIFAMPIN. [Interacting]
     Active Substance: RIFAMPIN
     Indication: TUBERCULOSIS
  2. TAMOXIFEN [Suspect]
     Active Substance: TAMOXIFEN
     Indication: INVASIVE BREAST CARCINOMA
     Route: 065
     Dates: start: 201301
  3. METHYLPREDNISOLONE. [Concomitant]
     Active Substance: METHYLPREDNISOLONE
  4. VITAMIN D [Concomitant]
     Active Substance: CHOLECALCIFEROL
  5. ASCORBIC ACID. [Concomitant]
     Active Substance: ASCORBIC ACID
  6. DALTEPARIN [Concomitant]
     Active Substance: DALTEPARIN
  7. FERROUS GLUCONATE [Concomitant]
     Active Substance: FERROUS GLUCONATE

REACTIONS (3)
  - Colitis ulcerative [Unknown]
  - Drug interaction [Unknown]
  - Drug level decreased [Recovered/Resolved]
